FAERS Safety Report 5445597-8 (Version None)
Quarter: 2007Q3

REPORT INFORMATION
  Report Type: 
  Country: None (occurrence: None)
  Receive Date: 20070906
  Receipt Date: 20070830
  Transmission Date: 20080115
  Serious: Yes (Hospitalization, Other)
  Sender: FDA-Public Use
  Company Number: FR-ABBOTT-07P-056-0415568-00

PATIENT
  Sex: Male

DRUGS (4)
  1. DEPAKENE [Suspect]
     Indication: DRUG USE FOR UNKNOWN INDICATION
     Route: 048
     Dates: start: 20020101, end: 20070801
  2. ASPIRIN [Suspect]
     Indication: DRUG USE FOR UNKNOWN INDICATION
     Route: 048
     Dates: start: 20020101, end: 20070801
  3. LEVETIRACETAM [Suspect]
     Indication: DRUG USE FOR UNKNOWN INDICATION
     Route: 048
     Dates: start: 20020101, end: 20070801
  4. GINKOR PROCTO [Concomitant]
     Indication: DRUG USE FOR UNKNOWN INDICATION
     Route: 048

REACTIONS (13)
  - BLOOD CREATININE INCREASED [None]
  - BLOOD OSMOLARITY INCREASED [None]
  - BLOOD UREA INCREASED [None]
  - BREATH SOUNDS ABNORMAL [None]
  - COGWHEEL RIGIDITY [None]
  - DEHYDRATION [None]
  - EXTRAPYRAMIDAL DISORDER [None]
  - GENERAL PHYSICAL HEALTH DETERIORATION [None]
  - HEMIPLEGIA [None]
  - HYPERNATRAEMIA [None]
  - HYPOREFLEXIA [None]
  - ORAL INTAKE REDUCED [None]
  - PULMONARY EMBOLISM [None]
